FAERS Safety Report 8342255-7 (Version None)
Quarter: 2012Q2

REPORT INFORMATION
  Report Type: 
  Country: None (occurrence: None)
  Receive Date: 20120507
  Receipt Date: 20120430
  Transmission Date: 20120825
  Serious: Yes (Other)
  Sender: FDA-Public Use
  Company Number: US-AMGEN-USASP2011065639

PATIENT
  Age: 84 Year
  Sex: Male
  Weight: 70 kg

DRUGS (88)
  1. EPOGEN [Suspect]
     Dosage: 18000 IU, 3 TIMES/WK
     Dates: start: 20081113, end: 20081204
  2. EPOGEN [Suspect]
     Dosage: 13000 UNIT, 3 TIMES/WK
     Dates: start: 20080312, end: 20080410
  3. FOSRENOL [Concomitant]
     Dosage: 1000 MG, TID
     Route: 048
     Dates: start: 20090303, end: 20090511
  4. BENADRYL [Concomitant]
     Dosage: 25 MG, QD
     Dates: start: 20120303
  5. VENOFER [Concomitant]
     Dosage: 100 MG, QWK
     Dates: start: 20090711, end: 20091105
  6. FLAGYL [Concomitant]
     Dosage: 500 MG, TID
     Route: 048
     Dates: start: 20080128, end: 20080211
  7. ZEMPLAR [Concomitant]
     Dosage: 1 MUG, 3 TIMES/WK
     Dates: start: 20080424, end: 20080612
  8. ERGOCALCIFEROL [Concomitant]
     Dosage: 50000 IU, Q4WK
     Route: 048
     Dates: start: 20090113, end: 20090720
  9. VANCOCIN HYDROCHLORIDE [Concomitant]
     Dosage: 125 MG, UNK
     Dates: start: 20080521, end: 20080709
  10. TOBRAMYCIN SULFATE [Concomitant]
     Dosage: 157 MG, UNK
     Route: 042
     Dates: start: 20080707, end: 20080708
  11. INFLUENZA VIRUS VACCINE [Concomitant]
     Dosage: 5 ML, UNK
     Route: 030
     Dates: start: 20081008, end: 20081009
  12. ARANESP [Suspect]
     Dosage: 300 MUG, Q2WK
     Route: 058
     Dates: start: 20111010, end: 20111205
  13. EPOGEN [Suspect]
     Dosage: 1500 IU, 3 TIMES/WK
     Dates: start: 20111219, end: 20120106
  14. EPOGEN [Suspect]
     Dosage: 1500 IU, 3 TIMES/WK
     Route: 042
     Dates: start: 20111130, end: 20111219
  15. VENOFER [Concomitant]
     Dosage: 100 MG, Q2MO
     Dates: start: 20090630, end: 20090711
  16. CATHFLO ACTIVASE [Concomitant]
     Dosage: UNK
     Dates: start: 20080125, end: 20080126
  17. ENGERIX-B [Concomitant]
     Dosage: 40 MUG, UNK
     Route: 030
     Dates: start: 20090622, end: 20090623
  18. ENGERIX-B [Concomitant]
     Dosage: UNK
     Route: 030
     Dates: start: 20080328, end: 20080329
  19. ENGERIX-B [Concomitant]
     Dosage: UNK
     Route: 030
     Dates: start: 20080128, end: 20080129
  20. CIPRO [Concomitant]
     Dosage: 500 MG, QD
     Route: 048
     Dates: start: 20090413, end: 20090420
  21. EPOGEN [Suspect]
     Dosage: 22000 IU, 3 TIMES/WK
     Dates: start: 20090305, end: 20090409
  22. HECTOROL [Concomitant]
     Dosage: 3 MUG, 3 TIMES/WK
     Route: 042
     Dates: start: 20111114, end: 20120123
  23. FERRLECIT [Concomitant]
     Dosage: 125 MG, Q3WK
     Route: 042
     Dates: start: 20111205, end: 20111224
  24. FERRLECIT [Concomitant]
     Dosage: 125 MG, Q2MO
     Dates: start: 20090113, end: 20090630
  25. FERRLECIT [Concomitant]
     Dosage: 125 MG, QWK
     Route: 042
     Dates: start: 20080227, end: 20080715
  26. FOSRENOL [Concomitant]
     Dosage: UNK
     Route: 048
     Dates: start: 20090608, end: 20090608
  27. BACTRIM [Concomitant]
     Dosage: UNK
  28. CHOLESTYRAMINE [Concomitant]
     Dosage: UNK UNK, TID
     Route: 048
     Dates: start: 20080128, end: 20080211
  29. ERGOCALCIFEROL [Concomitant]
     Dosage: 50000 IU, QWK
     Route: 048
     Dates: start: 20080307, end: 20080421
  30. VANCOCIN HYDROCHLORIDE [Concomitant]
     Dosage: 125 MG, UNK
     Dates: start: 20080521, end: 20080602
  31. LEVAQUIN [Concomitant]
     Dosage: 250 MG, QD
     Route: 048
  32. EPOGEN [Suspect]
     Dosage: 30000 IU, 3 TIMES/WK
     Route: 042
     Dates: start: 20090604, end: 20090711
  33. EPOGEN [Suspect]
     Dosage: 28000 IU, 3 TIMES/WK
     Route: 042
     Dates: start: 20090507, end: 20090604
  34. EPOGEN [Suspect]
     Dosage: 15000 IU, 3 TIMES/WK
     Route: 042
     Dates: start: 20090113, end: 20090208
  35. EPOGEN [Suspect]
     Dosage: 10000 IU, 3 TIMES/WK
     Dates: start: 20080911, end: 20081009
  36. VITAMIN C                          /00008001/ [Concomitant]
     Dosage: 500 MG, QD
     Dates: start: 20120303
  37. PRILOSEC [Concomitant]
     Dosage: 20 MG, QD
     Dates: start: 20120303
  38. VITAMIN B COMPLEX CAP [Concomitant]
     Dosage: UNK UNK, QD
     Dates: start: 20120124
  39. SODIUM CHLORIDE [Concomitant]
     Dosage: 500 ML, PRN
     Route: 042
     Dates: start: 20080201, end: 20080521
  40. DEXTROSE [Concomitant]
     Dosage: UNK UNK, PRN
     Route: 042
     Dates: start: 20080128
  41. EPINEPHRINE [Concomitant]
     Dosage: 0.25 MG, PRN
     Route: 042
     Dates: start: 20080128, end: 20080128
  42. VANTIN [Concomitant]
     Dosage: 100 MG, BID
     Dates: start: 20080521, end: 20080709
  43. ARANESP [Suspect]
     Dosage: UNK
     Dates: start: 20080123
  44. EPOGEN [Suspect]
     Dosage: 15000 IU, 3 TIMES/WK
     Dates: start: 20081009, end: 20081113
  45. EPOGEN [Suspect]
     Dosage: 9000 IU, 3 TIMES/WK
     Dates: start: 20080410, end: 20080812
  46. HECTOROL [Concomitant]
     Indication: HYPERPARATHYROIDISM SECONDARY
     Dosage: 1 MUG, Q3WK
     Route: 042
     Dates: start: 20120306, end: 20120316
  47. FERRLECIT [Concomitant]
     Indication: IRON DEFICIENCY ANAEMIA
     Dosage: 125 MG, Q3WK
     Route: 042
     Dates: start: 20120106, end: 20120108
  48. FERRLECIT [Concomitant]
     Dosage: 125 MG, QWK
     Route: 042
     Dates: start: 20111202, end: 20111205
  49. FERRLECIT [Concomitant]
     Dosage: 125 MG, Q3WK
     Route: 042
     Dates: start: 20111114, end: 20111129
  50. OXYGEN [Concomitant]
     Dosage: UNK UNK, PRN
     Dates: start: 20080128, end: 20080128
  51. SODIUM CHLORIDE [Concomitant]
     Dosage: UNK UNK, PRN
     Dates: start: 20080128, end: 20080521
  52. ENGERIX-B [Concomitant]
     Dosage: UNK
     Route: 030
     Dates: start: 20080728, end: 20080729
  53. ENGERIX-B [Concomitant]
     Dosage: UNK
     Route: 030
     Dates: start: 20080423, end: 20080424
  54. VANCOCIN HYDROCHLORIDE [Concomitant]
     Dosage: 125 MG, UNK
     Dates: start: 20080613, end: 20080709
  55. ARANESP [Suspect]
     Indication: ANAEMIA
     Dosage: 300 MUG, QWK
     Route: 058
     Dates: start: 20111114, end: 20111130
  56. EPOGEN [Suspect]
     Dosage: 11000 IU, 3 TIMES/WK
     Dates: start: 20080123, end: 20080312
  57. HECTOROL [Concomitant]
     Dosage: 0.5 MUG, QWK
     Dates: start: 20081016, end: 20090605
  58. FERRLECIT [Concomitant]
     Dosage: 125 MG, QWK
     Route: 042
     Dates: start: 20080131, end: 20080219
  59. FOSRENOL [Concomitant]
     Dosage: 500 MG, BID
     Route: 048
     Dates: start: 20090511, end: 20090608
  60. BENADRYL [Concomitant]
     Dosage: 25 MG, PRN
     Route: 042
     Dates: start: 20080128
  61. TYLENOL (CAPLET) [Concomitant]
     Indication: PAIN
     Dosage: 650 MG, Q4H
     Dates: start: 20120303
  62. VENOFER [Concomitant]
     Indication: IRON DEFICIENCY ANAEMIA
     Dosage: 100 MG, Q3WK
     Route: 042
     Dates: start: 20120109
  63. SODIUM CHLORIDE [Concomitant]
     Dosage: UNK UNK, PRN
     Dates: start: 20080521, end: 20110613
  64. ASPIRIN [Concomitant]
     Dosage: 80 MG, QD
     Dates: start: 20080128
  65. PHOSLO [Concomitant]
     Dosage: 667 MG, TID
     Dates: start: 20080128, end: 20090309
  66. RENA-VITE [Concomitant]
     Dosage: UNK
     Route: 048
     Dates: start: 20080128
  67. ERGOCALCIFEROL [Concomitant]
     Dosage: 50000 IU, QMO
     Route: 048
     Dates: start: 20080421, end: 20090113
  68. VANCOMYCIN HCL [Concomitant]
     Dosage: 1 G, UNK
     Route: 042
     Dates: start: 20080707, end: 20080708
  69. TUBERCULIN NOS [Concomitant]
     Dosage: UNK
     Route: 023
     Dates: start: 20081215, end: 20081229
  70. ARANESP [Suspect]
     Indication: RENAL FAILURE CHRONIC
     Dosage: 300 MUG, QWK
     Route: 058
     Dates: start: 20111130, end: 20111130
  71. EPOGEN [Suspect]
     Dosage: 20000 IU, 3 TIMES/WK
     Route: 042
     Dates: start: 20090711, end: 20090711
  72. EPOGEN [Suspect]
     Dosage: 19000 IU, 3 TIMES/WK
     Route: 042
     Dates: start: 20081204, end: 20090113
  73. HECTOROL [Concomitant]
     Dosage: 2 MUG, Q3WK
     Dates: start: 20120123, end: 20120306
  74. FERRLECIT [Concomitant]
     Dosage: 125 MG, Q3WK
     Route: 042
     Dates: start: 20111224, end: 20120103
  75. FERRLECIT [Concomitant]
     Dosage: 125 MG, Q3WK
     Route: 042
     Dates: start: 20111219
  76. FERRLECIT [Concomitant]
     Dosage: 125 MG, UNK
     Dates: start: 20080715, end: 20081009
  77. REGLAN [Concomitant]
     Indication: NAUSEA
     Dosage: 10 MG, Q6H
     Dates: start: 20120303
  78. TYLENOL (CAPLET) [Concomitant]
     Dosage: 650 MG, PRN
     Route: 048
     Dates: start: 20080128, end: 20080221
  79. ENGERIX-B [Concomitant]
     Dosage: 40 MUG, UNK
     Dates: start: 20090724, end: 20090725
  80. ENGERIX-B [Concomitant]
     Dosage: UNK
     Route: 030
     Dates: start: 20080227, end: 20080228
  81. ZEMPLAR [Concomitant]
     Dosage: 3 MUG, 3 TIMES/WK
     Route: 042
     Dates: start: 20080131, end: 20080424
  82. EPOGEN [Suspect]
     Dosage: 14300 IU, 3 TIMES/WK
     Route: 042
     Dates: start: 20120107
  83. EPOGEN [Suspect]
     Dosage: 18000 IU, 3 TIMES/WK
     Dates: start: 20090208, end: 20090305
  84. EPOGEN [Suspect]
     Dosage: 12000 IU, 3 TIMES/WK
     Dates: start: 20080812, end: 20080911
  85. HYPERTONIC SALINE SOLUTION [Concomitant]
     Dosage: 05 ML, PRN
     Route: 042
     Dates: start: 20080128
  86. METOPROLOL SUCCINATE [Concomitant]
     Dosage: 12.5 MG, BID
     Dates: start: 20080128, end: 20080923
  87. ERGOCALCIFEROL [Concomitant]
     Dosage: 50000 IU, QMO
     Route: 048
     Dates: start: 20090720, end: 20100120
  88. TUBERCULIN NOS [Concomitant]
     Dosage: UNK
     Route: 023
     Dates: start: 20081215, end: 20081216

REACTIONS (5)
  - INFECTION [None]
  - PALLOR [None]
  - FATIGUE [None]
  - HAEMOGLOBIN DECREASED [None]
  - DRUG INEFFECTIVE [None]
